FAERS Safety Report 17465156 (Version 1)
Quarter: 2020Q1

REPORT INFORMATION
  Report Type: Other
  Country: FR (occurrence: FR)
  Receive Date: 20200226
  Receipt Date: 20200226
  Transmission Date: 20200409
  Serious: Yes (Life-Threatening)
  Sender: FDA-Public Use
  Company Number: FR-CELLTRION INC.-2020FR019830

PATIENT

DRUGS (1)
  1. TRUXIMA [Suspect]
     Active Substance: RITUXIMAB-ABBS
     Indication: HAEMOLYTIC ANAEMIA
     Dosage: UNK
     Route: 041
     Dates: start: 20191231, end: 20191231

REACTIONS (3)
  - Bradycardia [Recovered/Resolved]
  - Loss of consciousness [Recovered/Resolved]
  - Product use in unapproved indication [Unknown]

NARRATIVE: CASE EVENT DATE: 20191231
